FAERS Safety Report 10242184 (Version 2)
Quarter: 2014Q2

REPORT INFORMATION
  Report Type: Spontaneous
  Country: IT (occurrence: IT)
  Receive Date: 20140617
  Receipt Date: 20140617
  Transmission Date: 20141212
  Serious: Yes (Other)
  Sender: FDA-Public Use
  Company Number: IT-PFIZER INC-2014151555

PATIENT
  Age: 46 Year
  Sex: Female

DRUGS (2)
  1. SUNITINIB MALATE [Suspect]
     Indication: GASTROINTESTINAL STROMAL TUMOUR
     Dosage: 50 MG, 1X/DAY (SCHEDULE 4/2)
  2. SUNITINIB MALATE [Suspect]
     Dosage: 37.5 MG, 1X/DAY

REACTIONS (3)
  - Skin toxicity [Unknown]
  - Anaemia [Unknown]
  - Asthenia [Unknown]
